FAERS Safety Report 7138893-X (Version None)
Quarter: 2010Q4

REPORT INFORMATION
  Report Type: 
  Country: None (occurrence: None)
  Receive Date: 20101206
  Receipt Date: 20091231
  Transmission Date: 20110411
  Serious: No
  Sender: FDA-Public Use
  Company Number: US-ABBOTT-10P-163-0617730-00

PATIENT
  Sex: Male

DRUGS (1)
  1. OMNICEF [Suspect]
     Indication: PRODUCT USED FOR UNKNOWN INDICATION
     Dosage: 125MG/5ML
     Route: 048
     Dates: start: 20091228

REACTIONS (3)
  - COUGH [None]
  - INCORRECT DOSE ADMINISTERED [None]
  - INCORRECT STORAGE OF DRUG [None]
